FAERS Safety Report 7824192-7 (Version None)
Quarter: 2011Q4

REPORT INFORMATION
  Report Type: 
  Country: None (occurrence: None)
  Receive Date: 20111014
  Receipt Date: 20110929
  Transmission Date: 20120403
  Serious: Yes (Other)
  Sender: FDA-Public Use
  Company Number: 2011SP003385

PATIENT
  Age: 12 Year
  Sex: Female

DRUGS (1)
  1. ALVESCO [Suspect]
     Indication: ASTHMA
     Dosage: INHALATION
     Route: 055

REACTIONS (1)
  - CATARACT [None]
